FAERS Safety Report 8594797-7 (Version None)
Quarter: 2012Q3

REPORT INFORMATION
  Report Type: 
  Country: None (occurrence: None)
  Receive Date: 20120801
  Receipt Date: 20120720
  Transmission Date: 20120928
  Serious: Yes (Hospitalization)
  Sender: FDA-Public Use
  Company Number: FR-008986

PATIENT
  Age: 64 Year
  Sex: Male

DRUGS (2)
  1. DEGARELIX (FIRMAGON 120 MG) 2 DF [Suspect]
     Indication: PROSTATE CANCER
     Dosage: (2 DF 1X SUBCUTANEOUS)
     Route: 058
     Dates: start: 20120117, end: 20120117
  2. DEGARELIX (FIRMAGON 80 MG) 1 DF [Suspect]
     Indication: PROSTATE CANCER
     Dosage: (1 DF 1X/MONTH SUBCUTANEOUS)
     Route: 058
     Dates: start: 20120201

REACTIONS (2)
  - PROSTATIC SPECIFIC ANTIGEN INCREASED [None]
  - PENILE OEDEMA [None]
